FAERS Safety Report 24002533 (Version 1)
Quarter: 2024Q2

REPORT INFORMATION
  Report Type: Spontaneous
  Country: CN (occurrence: CN)
  Receive Date: 20240623
  Receipt Date: 20240623
  Transmission Date: 20240716
  Serious: Yes (Hospitalization)
  Sender: FDA-Public Use
  Company Number: CN-BEIGENE-BGN-2024-009075

PATIENT

DRUGS (4)
  1. TISLELIZUMAB [Suspect]
     Active Substance: TISLELIZUMAB
     Indication: Lung neoplasm malignant
     Dosage: 200 MILLIGRAM, Q3WK
     Route: 041
     Dates: start: 20240522
  2. CISPLATIN [Suspect]
     Active Substance: CISPLATIN
     Indication: Lung neoplasm malignant
     Dosage: 40 MILLIGRAM, D1
     Route: 041
     Dates: start: 20240522
  3. CISPLATIN [Suspect]
     Active Substance: CISPLATIN
     Dosage: 30 MILLIGRAM, D2-D3
     Route: 041
     Dates: start: 20240522
  4. PEMETREXED DISODIUM [Suspect]
     Active Substance: PEMETREXED DISODIUM
     Indication: Lung neoplasm malignant
     Dosage: 0.7 GRAM, Q3WK
     Route: 041
     Dates: start: 20240522

REACTIONS (2)
  - Granulocyte count decreased [Unknown]
  - White blood cell count decreased [Unknown]

NARRATIVE: CASE EVENT DATE: 20240529
